FAERS Safety Report 14304067 (Version 1)
Quarter: 2017Q4

REPORT INFORMATION
  Report Type: Spontaneous
  Country: FR (occurrence: FR)
  Receive Date: 20171219
  Receipt Date: 20171219
  Transmission Date: 20180321
  Serious: Yes (Death, Hospitalization, Other)
  Sender: FDA-Public Use
  Company Number: FR-OTSUKA-DJ20083930

PATIENT
  Age: 51 Year
  Sex: Male

DRUGS (5)
  1. LOXAPAC [Suspect]
     Active Substance: LOXAPINE SUCCINATE
     Indication: SCHIZOPHRENIA
     Dosage: 50 MG, UNK
     Route: 030
     Dates: start: 200507
  2. RISPERDAL CONSTA [Suspect]
     Active Substance: RISPERIDONE
     Indication: SCHIZOPHRENIA
     Dosage: 1 INJECTION Q 14 DAYS
     Route: 051
     Dates: start: 200804
  3. ABILIFY [Suspect]
     Active Substance: ARIPIPRAZOLE
     Indication: SCHIZOPHRENIA
     Dosage: 30 MG, QD
     Route: 048
  4. HALDOL [Suspect]
     Active Substance: HALOPERIDOL
     Indication: SCHIZOPHRENIA
     Dosage: 180 GTT, QD
     Route: 065
     Dates: start: 200703
  5. NOZINAN                            /00038601/ [Suspect]
     Active Substance: LEVOMEPROMAZINE
     Indication: SCHIZOPHRENIA
     Dosage: 1.5 PER DAY
     Route: 065
     Dates: start: 200306

REACTIONS (7)
  - Altered state of consciousness [Unknown]
  - Depressed level of consciousness [Unknown]
  - Shock [Fatal]
  - Abdominal pain [Unknown]
  - Cardio-respiratory arrest [Fatal]
  - Faecaloma [Unknown]
  - Intestinal obstruction [Unknown]

NARRATIVE: CASE EVENT DATE: 20081003
